FAERS Safety Report 9638893 (Version 3)
Quarter: 2014Q1

REPORT INFORMATION
  Report Type: Report from Study
  Country: US (occurrence: US)
  Receive Date: 20131022
  Receipt Date: 20140221
  Transmission Date: 20141002
  Serious: Yes (Hospitalization)
  Sender: FDA-Public Use
  Company Number: PHHO2012US001379

PATIENT
  Age: 77 Year
  Sex: Female

DRUGS (3)
  1. SOM230 [Suspect]
     Indication: PANCREATIC CARCINOMA
     Dosage: 900 UG, BID
     Route: 058
     Dates: start: 20120116
  2. INSULIN [Suspect]
  3. BETA BLOCKING AGENTS [Concomitant]

REACTIONS (3)
  - Hyperglycaemia [Recovered/Resolved]
  - Nausea [Recovered/Resolved]
  - Amylase increased [Recovered/Resolved]
